FAERS Safety Report 9991815 (Version 2)
Quarter: 2014Q2

REPORT INFORMATION
  Report Type: Spontaneous
  Country: US (occurrence: US)
  Receive Date: 20140310
  Receipt Date: 20140409
  Transmission Date: 20141212
  Serious: Yes (Death, Hospitalization)
  Sender: FDA-Public Use
  Company Number: US-INCYTE CORPORATION-2014IN000563

PATIENT
  Age: 76 Year
  Sex: Male
  Weight: 78.46 kg

DRUGS (23)
  1. JAKAFI [Suspect]
     Indication: MYELOFIBROSIS
     Dosage: 15 MG, BID
     Route: 048
     Dates: start: 20111209
  2. JAKAFI [Suspect]
     Indication: PRURITUS
     Dosage: 20 MG, BID
     Route: 048
     Dates: start: 20111214
  3. JAKAFI [Suspect]
     Dosage: 10 MG, BID
     Route: 048
     Dates: start: 201201
  4. JAKAFI [Suspect]
     Dosage: 15 MG, BID
     Route: 048
     Dates: start: 20131209, end: 20140214
  5. PREDNISONE [Concomitant]
     Dosage: 10 MG, QD
  6. REQUIP [Concomitant]
     Dosage: 2 MG
  7. BUMEX [Concomitant]
     Dosage: 2 MG, QD
  8. METOPROLOL [Concomitant]
     Dosage: 12.5 MG 1/2 TABLET TWICE DAILY
  9. ALLOPURINOL [Concomitant]
  10. LEVOTHYROXINE [Concomitant]
     Dosage: 125 DAILY
  11. OMEPRAZOLE [Concomitant]
     Dosage: 20
  12. CALCIUM [Concomitant]
  13. IRON [Concomitant]
  14. ASPIRIN [Concomitant]
     Dosage: 81 MG, QD
  15. NORCO [Concomitant]
     Dosage: 10/325 MG ONE TABLET Q. 4 HOURS P.R.N
  16. KEFLEX                             /00145501/ [Concomitant]
     Dosage: 500 MG, TID
  17. PROBIOTIC                          /06395501/ [Concomitant]
     Dosage: DAILY
  18. DIGOXIN [Concomitant]
     Dosage: 250 MG, QD
  19. VITAMIN B2                         /00154901/ [Concomitant]
     Dosage: 50,000 UNITS WEEKLY
  20. FENTANYL PATCH [Concomitant]
     Dosage: 75 MCG CHANGED EVERY THIRD DAY
  21. GABAPENTIN [Concomitant]
     Dosage: 300 MG Q.A.M AND 600 MG Q. NIGHTLY
  22. PROCHLORPERAZINE [Concomitant]
     Dosage: 10 MG ONE TABLET EVERRY 8 HOURS P.R.N. NAUSEA
  23. ZOLOFT [Concomitant]
     Dosage: 200 MG AT BEDTIME

REACTIONS (3)
  - Bone marrow infiltration [Fatal]
  - Cellulitis [None]
  - Anaemia [Unknown]
